FAERS Safety Report 12993187 (Version 1)
Quarter: 2016Q4

REPORT INFORMATION
  Report Type: Spontaneous
  Country: CA (occurrence: US)
  Receive Date: 20161201
  Receipt Date: 20161201
  Transmission Date: 20170207
  Serious: No
  Sender: FDA-Public Use
  Company Number: None

PATIENT
  Age: 60 Year
  Sex: Male
  Weight: 96.1 kg

DRUGS (1)
  1. ZOLADEX [Suspect]
     Active Substance: GOSERELIN ACETATE
     Dates: end: 20161007

REACTIONS (2)
  - Adenocarcinoma of colon [None]
  - Rectal haemorrhage [None]

NARRATIVE: CASE EVENT DATE: 20161123
